FAERS Safety Report 5488093-4 (Version None)
Quarter: 2007Q4

REPORT INFORMATION
  Report Type: 
  Country: None (occurrence: None)
  Receive Date: 20071017
  Receipt Date: 20071012
  Transmission Date: 20080405
  Serious: Yes (Other)
  Sender: FDA-Public Use
  Company Number: HQWYE257420SEP07

PATIENT
  Age: 21 Year
  Sex: Female

DRUGS (5)
  1. ANADIN IBUPROFEN [Suspect]
     Indication: ARTHROPATHY
     Dosage: UNKNOWN
     Route: 065
     Dates: start: 20030101, end: 20030101
  2. ANADIN IBUPROFEN [Suspect]
     Indication: INFLUENZA LIKE ILLNESS
  3. COLOMYCIN [Suspect]
     Indication: LUNG DISORDER
     Dosage: ^2 MLU 3/1 DAYS^
     Route: 042
     Dates: start: 20031101, end: 20030101
  4. TOBRAMYCIN [Suspect]
     Indication: LUNG DISORDER
     Dosage: 120MG 3/1 DAYS
     Route: 042
     Dates: start: 20031101
  5. AZITHROMYCIN [Suspect]
     Indication: ANTIINFLAMMATORY THERAPY
     Dosage: UNKNOWN
     Route: 065
     Dates: end: 20030101

REACTIONS (5)
  - DYSPEPSIA [None]
  - ORAL INTAKE REDUCED [None]
  - RENAL FAILURE ACUTE [None]
  - VOMITING [None]
  - WEIGHT DECREASED [None]
